FAERS Safety Report 23457752 (Version 1)
Quarter: 2024Q1

REPORT INFORMATION
  Report Type: Spontaneous
  Country: US (occurrence: US)
  Receive Date: 20240130
  Receipt Date: 20240130
  Transmission Date: 20240410
  Serious: Yes (Hospitalization, Other)
  Sender: FDA-Public Use
  Company Number: US-AVION PHARMACEUTICALS-2024ALO00011

PATIENT
  Age: 46 Year
  Sex: Female

DRUGS (1)
  1. LEVONORGESTREL [Suspect]
     Active Substance: LEVONORGESTREL
     Indication: Uterine haemorrhage
     Dosage: UNK
     Route: 015

REACTIONS (1)
  - Reversible cerebral vasoconstriction syndrome [Recovered/Resolved]
